FAERS Safety Report 6005118-8 (Version None)
Quarter: 2008Q4

REPORT INFORMATION
  Report Type: 
  Country: None (occurrence: None)
  Receive Date: 20081215
  Receipt Date: 20081209
  Transmission Date: 20090506
  Serious: Yes (Hospitalization)
  Sender: FDA-Public Use
  Company Number: TAP2008Q01007

PATIENT
  Age: 3 Month
  Sex: Female

DRUGS (1)
  1. PREVACID [Suspect]
     Dosage: PER ORAL
     Route: 048
     Dates: start: 20080501

REACTIONS (1)
  - MOVEMENT DISORDER [None]
